FAERS Safety Report 10703575 (Version 1)
Quarter: 2015Q1

REPORT INFORMATION
  Report Type: Spontaneous
  Country: US (occurrence: None)
  Receive Date: 20150108
  Receipt Date: 20150108
  Transmission Date: 20150721
  Serious: Yes (Death)
  Sender: FDA-Public Use
  Company Number: PR 2824

PATIENT
  Sex: Female

DRUGS (5)
  1. ZIOPTAN [Suspect]
     Active Substance: TAFLUPROST
     Indication: ANGLE CLOSURE GLAUCOMA
     Dosage: 1 GTT, SINGLE
     Dates: start: 20090908, end: 20110226
  2. CRAVTI(LEVOFLOXACIN) [Concomitant]
  3. GATIFLOXACIN EYE DROPS [Concomitant]
  4. TARIVIDE(OFLOXACIN HYDROCHLORIDE) [Concomitant]
  5. TIMOPTOL-ZE(TIMOLOL MALEATE) [Concomitant]

REACTIONS (1)
  - Death [None]
